FAERS Safety Report 17571349 (Version 3)
Quarter: 2020Q2

REPORT INFORMATION
  Report Type: Spontaneous
  Country: CA (occurrence: CA)
  Receive Date: 20200323
  Receipt Date: 20200401
  Transmission Date: 20200713
  Serious: Yes (Hospitalization)
  Sender: FDA-Public Use
  Company Number: CA-PFIZER INC-2020060549

PATIENT
  Age: 4 Month
  Sex: Male
  Weight: 8.24 kg

DRUGS (1)
  1. ADVIL PEDIATRIC DROPS [Suspect]
     Active Substance: IBUPROFEN
     Indication: PYREXIA
     Dosage: 1 ML, UNK
     Dates: start: 20200127, end: 20200209

REACTIONS (10)
  - Fear [Unknown]
  - Weight decreased [Unknown]
  - Oral discomfort [Unknown]
  - Eating disorder [Unknown]
  - Tongue discomfort [Unknown]
  - Infantile spitting up [Recovered/Resolved]
  - Oral pain [Unknown]
  - Crying [Recovered/Resolved]
  - Infantile vomiting [Recovered/Resolved]
  - Dyspepsia [Unknown]

NARRATIVE: CASE EVENT DATE: 202002
